FAERS Safety Report 4707367-5 (Version None)
Quarter: 2005Q3

REPORT INFORMATION
  Report Type: 
  Country: None (occurrence: None)
  Receive Date: 20050701
  Receipt Date: 20050701
  Transmission Date: 20060218
  Serious: Yes (Hospitalization, Other)
  Sender: FDA-Public Use
  Company Number: None

PATIENT
  Sex: Male
  Weight: 10.4 kg

DRUGS (5)
  1. METHOTREXATE [Suspect]
     Dosage: 7.5 MG IT DAY 1, EVERY WEEK FOR 2 WEEKS
     Route: 037
  2. HYDROCORTISONE [Suspect]
     Dosage: 7.5 MG IT DAY 1, EVERY WEEK FOR 2 WEEKS
     Route: 037
  3. CYTARABINE [Suspect]
     Dosage: 15 MG IT DAY 1, EVERY WEEK FOR 2 WEEKS
     Route: 037
  4. LEUCOVORIN CALCIUM [Suspect]
     Dosage: 10MG/M2 IVP Q6H FOR 2 DOSES STARTING ON DAY 2 (42 HOURS AFTER INSET OF HD MTX IN)
     Route: 042
  5. CYCLOPHOSPHAMIDE [Suspect]
     Dosage: 300 MG/M2 IV OVER 30 MINUTES DAILY FOR 5 DAYS STARTING ON DAY 15
     Route: 042

REACTIONS (6)
  - CATHETER RELATED INFECTION [None]
  - CONVULSION [None]
  - DIARRHOEA [None]
  - HYPONATRAEMIA [None]
  - HYPOTENSION [None]
  - PYREXIA [None]
